FAERS Safety Report 15665531 (Version 1)
Quarter: 2018Q4

REPORT INFORMATION
  Report Type: Spontaneous
  Country: FI (occurrence: FI)
  Receive Date: 20181128
  Receipt Date: 20181128
  Transmission Date: 20190205
  Serious: Yes (Hospitalization)
  Sender: FDA-Public Use
  Company Number: FI-LPDUSPRD-20182230

PATIENT
  Age: 79 Year
  Sex: Female

DRUGS (1)
  1. FERINJECT [Suspect]
     Active Substance: FERRIC CARBOXYMALTOSE
     Dosage: 1000 MG
     Route: 041

REACTIONS (4)
  - Infusion site pain [Recovered/Resolved]
  - Infusion site discolouration [Not Recovered/Not Resolved]
  - Infusion site extravasation [Unknown]
  - Infusion site swelling [Recovered/Resolved]
